FAERS Safety Report 5607634-7 (Version None)
Quarter: 2008Q1

REPORT INFORMATION
  Report Type: 
  Country: None (occurrence: None)
  Receive Date: 20080130
  Receipt Date: 20080121
  Transmission Date: 20080703
  Serious: Yes (Hospitalization, Other)
  Sender: FDA-Public Use
  Company Number: PHHO2007AU16876

PATIENT
  Age: 52 Year
  Sex: Male
  Weight: 68 kg

DRUGS (3)
  1. NEORAL [Suspect]
     Indication: LIVER TRANSPLANT
     Dosage: 125 MG, BID
     Route: 048
     Dates: start: 20070430
  2. PREDNISOLONE [Concomitant]
  3. AZATHIOPRINE [Concomitant]
     Indication: LIVER TRANSPLANT
     Dosage: 100MG, DAILY
     Route: 048
     Dates: start: 20070616

REACTIONS (5)
  - BILIARY ANASTOMOSIS COMPLICATION [None]
  - ENDOSCOPIC RETROGRADE CHOLANGIOPANCREATOGRAPHY [None]
  - HERNIA [None]
  - HERNIA REPAIR [None]
  - POSTOPERATIVE FEVER [None]
